FAERS Safety Report 6919543-1 (Version None)
Quarter: 2010Q3

REPORT INFORMATION
  Report Type: 
  Country: None (occurrence: None)
  Receive Date: 20100810
  Receipt Date: 20100810
  Transmission Date: 20110219
  Serious: Yes (Life-Threatening, Hospitalization)
  Sender: FDA-Public Use
  Company Number: None

PATIENT
  Age: 83 Year
  Sex: Female
  Weight: 74.8435 kg

DRUGS (1)
  1. PIROXICAM [Suspect]
     Indication: CARPAL TUNNEL SYNDROME
     Dosage: 20 MG PER DAY PO
     Route: 048
     Dates: start: 20000809, end: 20100802

REACTIONS (3)
  - CEREBROVASCULAR ACCIDENT [None]
  - PAIN [None]
  - RUPTURED CEREBRAL ANEURYSM [None]
